FAERS Safety Report 21241774 (Version 1)
Quarter: 2022Q3

REPORT INFORMATION
  Report Type: Report from Study
  Country: CA (occurrence: CA)
  Receive Date: 20220823
  Receipt Date: 20220823
  Transmission Date: 20221027
  Serious: Yes (Other)
  Sender: FDA-Public Use
  Company Number: CA-ABBVIE-22K-028-4510996-00

PATIENT
  Age: 86 Year
  Sex: Male

DRUGS (1)
  1. LUPRON DEPOT [Suspect]
     Active Substance: LEUPROLIDE ACETATE
     Indication: Prostate cancer
     Route: 030
     Dates: start: 20180328

REACTIONS (12)
  - Neoplasm malignant [Unknown]
  - Fall [Unknown]
  - Contusion [Unknown]
  - Fatigue [Unknown]
  - Hypoaesthesia [Unknown]
  - Palliative care [Unknown]
  - Rib fracture [Unknown]
  - Head injury [Unknown]
  - Skin abrasion [Unknown]
  - Asthenia [Not Recovered/Not Resolved]
  - Mobility decreased [Not Recovered/Not Resolved]
  - Pain in extremity [Unknown]

NARRATIVE: CASE EVENT DATE: 20220701
